FAERS Safety Report 5934219-5 (Version None)
Quarter: 2008Q4

REPORT INFORMATION
  Report Type: 
  Country: None (occurrence: None)
  Receive Date: 20081028
  Receipt Date: 20081028
  Transmission Date: 20090506
  Serious: Yes (Hospitalization)
  Sender: FDA-Public Use
  Company Number: None

PATIENT
  Age: 66 Year
  Sex: Female
  Weight: 65.7716 kg

DRUGS (1)
  1. CLINDAMYCIN HCL [Suspect]
     Indication: BACTERIAL INFECTION
     Dosage: 1 CAP 3 X DAILY PO
     Route: 048
     Dates: start: 20081013, end: 20081022

REACTIONS (8)
  - AURICULAR SWELLING [None]
  - BLISTER [None]
  - DRUG HYPERSENSITIVITY [None]
  - LIP SWELLING [None]
  - LOCAL SWELLING [None]
  - LOCALISED OEDEMA [None]
  - PAIN [None]
  - RASH [None]
